FAERS Safety Report 15111356 (Version 2)
Quarter: 2021Q3

REPORT INFORMATION
  Report Type: Spontaneous
  Country: IT (occurrence: IT)
  Receive Date: 20180705
  Receipt Date: 20210924
  Transmission Date: 20211014
  Serious: Yes (Other)
  Sender: FDA-Public Use
  Company Number: IT-TEVA-2018-IT-918700

PATIENT
  Age: 91 Year
  Sex: Female

DRUGS (7)
  1. GLIBOMET [Concomitant]
     Active Substance: GLYBURIDE\METFORMIN HYDROCHLORIDE
  2. RAMIPRIL. [Concomitant]
     Active Substance: RAMIPRIL
  3. HUMALOG [Suspect]
     Active Substance: INSULIN LISPRO
     Indication: TYPE 2 DIABETES MELLITUS
     Dosage: 100 UNITS/ML ? FORM STRENGTH
     Route: 058
     Dates: start: 20170101, end: 20170714
  4. EUTIROX [Concomitant]
     Active Substance: LEVOTHYROXINE SODIUM
  5. LANSOPRAZOLE. [Concomitant]
     Active Substance: LANSOPRAZOLE
  6. METFORMIN [Suspect]
     Active Substance: METFORMIN HYDROCHLORIDE
     Indication: TYPE 2 DIABETES MELLITUS
     Dosage: 1500 MILLIGRAM DAILY;
     Route: 048
     Dates: start: 20170101, end: 20170714
  7. PAROXETINE. [Concomitant]
     Active Substance: PAROXETINE

REACTIONS (2)
  - Hypoglycaemia [Recovering/Resolving]
  - Hypoglycaemic coma [Recovering/Resolving]

NARRATIVE: CASE EVENT DATE: 20170714
